FAERS Safety Report 12728776 (Version 2)
Quarter: 2016Q3

REPORT INFORMATION
  Report Type: Spontaneous
  Country: TW (occurrence: TW)
  Receive Date: 20160909
  Receipt Date: 20160919
  Transmission Date: 20161109
  Serious: Yes (Hospitalization)
  Sender: FDA-Public Use
  Company Number: TW-BAYER-2016-174637

PATIENT
  Age: 44 Year
  Sex: Female
  Weight: 80 kg

DRUGS (1)
  1. GADOVIST [Suspect]
     Active Substance: GADOBUTROL
     Indication: NUCLEAR MAGNETIC RESONANCE IMAGING BREAST
     Dosage: 8 ML, ONCE

REACTIONS (5)
  - Blood pressure decreased [None]
  - Dizziness [None]
  - Abdominal pain [Recovering/Resolving]
  - Vaginal haemorrhage [None]
  - Cold sweat [None]

NARRATIVE: CASE EVENT DATE: 20160907
